FAERS Safety Report 19776442 (Version 1)
Quarter: 2021Q3

REPORT INFORMATION
  Report Type: Spontaneous
  Country: GB (occurrence: GB)
  Receive Date: 20210901
  Receipt Date: 20210901
  Transmission Date: 20211014
  Serious: Yes (Other)
  Sender: FDA-Public Use
  Company Number: GB-PFIZER INC-202101081070

PATIENT
  Age: 51 Year
  Sex: Female
  Weight: 58.8 kg

DRUGS (2)
  1. METHYLPREDNISOLONE SODIUM SUCCINATE. [Suspect]
     Active Substance: METHYLPREDNISOLONE SODIUM SUCCINATE
     Dosage: 100 MG AS A BOLUS OVER 5 MINUTES
     Route: 042
     Dates: start: 20210813, end: 20210813
  2. METHYLPREDNISOLONE SODIUM SUCCINATE. [Suspect]
     Active Substance: METHYLPREDNISOLONE SODIUM SUCCINATE
     Indication: PREMEDICATION
     Dosage: UNK
     Dates: start: 202107, end: 202107

REACTIONS (11)
  - Stridor [Recovered/Resolved]
  - Hypertension [Recovered/Resolved]
  - Dysuria [Unknown]
  - Feeling abnormal [Recovered/Resolved]
  - Throat tightness [Recovered/Resolved]
  - Agitation [Recovered/Resolved]
  - Tachycardia [Recovered/Resolved]
  - Skin burning sensation [Unknown]
  - Panic attack [Unknown]
  - Dyspnoea [Recovered/Resolved]
  - Chest pain [Recovered/Resolved]

NARRATIVE: CASE EVENT DATE: 2021
